FAERS Safety Report 5488840-1 (Version None)
Quarter: 2007Q4

REPORT INFORMATION
  Report Type: 
  Country: None (occurrence: None)
  Receive Date: 20071017
  Receipt Date: 20071005
  Transmission Date: 20080405
  Serious: Yes (Other)
  Sender: FDA-Public Use
  Company Number: NO-PFIZER INC-2007083594

PATIENT
  Sex: Male

DRUGS (3)
  1. AZITROMAX [Suspect]
     Indication: PROSTATITIS
     Route: 048
  2. CARDURA [Suspect]
     Indication: PROSTATITIS
     Route: 048
  3. CIPROXIN [Suspect]
     Indication: PROSTATITIS
     Route: 048

REACTIONS (2)
  - CHRONIC FATIGUE SYNDROME [None]
  - PSEUDOMEMBRANOUS COLITIS [None]
